FAERS Safety Report 7904015-8 (Version None)
Quarter: 2011Q4

REPORT INFORMATION
  Report Type: 
  Country: None (occurrence: None)
  Receive Date: 20111109
  Receipt Date: 20111031
  Transmission Date: 20120403
  Serious: Yes (Other)
  Sender: FDA-Public Use
  Company Number: CA-ASTRAZENECA-2011SE66474

PATIENT
  Age: 64 Year
  Sex: Female

DRUGS (8)
  1. CRESTOR [Suspect]
     Route: 048
  2. CRESTOR [Suspect]
     Route: 048
     Dates: start: 20110101
  3. SYNTHROID [Concomitant]
     Route: 048
  4. TIAZAC [Concomitant]
     Dosage: IN THE EVENING
     Route: 048
  5. CRESTOR [Suspect]
     Route: 048
  6. CRESTOR [Suspect]
     Route: 048
  7. AVAPRO [Concomitant]
     Route: 048
  8. CYTOMEL [Concomitant]
     Route: 048

REACTIONS (3)
  - EXTRASYSTOLES [None]
  - PALPITATIONS [None]
  - INSOMNIA [None]
